FAERS Safety Report 9970797 (Version 1)
Quarter: 2014Q1

REPORT INFORMATION
  Report Type: Spontaneous
  Country: US (occurrence: None)
  Receive Date: 20140305
  Receipt Date: 20140305
  Transmission Date: 20141002
  Serious: Yes (Hospitalization)
  Sender: FDA-Public Use
  Company Number: None

PATIENT
  Age: 79 Year
  Sex: Male
  Weight: 92.99 kg

DRUGS (4)
  1. XARELTO [Suspect]
     Indication: ATRIAL FIBRILLATION
     Dates: start: 20131220, end: 20140207
  2. POTASSIUM CHLORIDE ER [Concomitant]
  3. CINNAMON BARK [Concomitant]
  4. VITAMIN D [Concomitant]

REACTIONS (12)
  - Dizziness [None]
  - Balance disorder [None]
  - Asthenia [None]
  - Haematochezia [None]
  - Faeces discoloured [None]
  - Hernia pain [None]
  - Anuria [None]
  - Penile pain [None]
  - Proctalgia [None]
  - Small intestinal haemorrhage [None]
  - Groin pain [None]
  - Constipation [None]
